FAERS Safety Report 7004629-6 (Version None)
Quarter: 2010Q3

REPORT INFORMATION
  Report Type: 
  Country: None (occurrence: None)
  Receive Date: 20100921
  Receipt Date: 20100910
  Transmission Date: 20110219
  Serious: Yes (Hospitalization)
  Sender: FDA-Public Use
  Company Number: PL-SANOFI-AVENTIS-2010SA014367

PATIENT
  Age: 56 Year
  Sex: Male
  Weight: 60 kg

DRUGS (17)
  1. OXALIPLATIN [Suspect]
     Route: 041
     Dates: start: 20100209, end: 20100209
  2. OXALIPLATIN [Suspect]
     Route: 041
     Dates: start: 20100302, end: 20100302
  3. CAPECITABINE [Suspect]
     Route: 065
     Dates: start: 20100209
  4. CAPECITABINE [Suspect]
     Route: 065
     Dates: start: 20100302
  5. AVASTIN [Suspect]
     Route: 041
     Dates: start: 20100209, end: 20100209
  6. AVASTIN [Suspect]
     Route: 041
     Dates: start: 20100302, end: 20100302
  7. INVESTIGATIONAL DRUG [Concomitant]
     Dates: start: 20100209, end: 20100302
  8. NEBIVOLOL HCL [Concomitant]
     Dates: start: 20060101, end: 20100302
  9. NEBIVOLOL HCL [Concomitant]
     Dates: start: 20100302
  10. PENTASA [Concomitant]
     Dates: start: 19940101
  11. FERROGRAD [Concomitant]
     Dates: start: 19940101
  12. ENTOCORT EC [Concomitant]
     Dates: start: 19940101
  13. CAL-D-VITA [Concomitant]
     Dates: start: 19940101
  14. CORTISON CIBA [Concomitant]
     Dates: start: 20100301, end: 20100301
  15. NEXIUM [Concomitant]
     Dates: start: 20100301
  16. CREON [Concomitant]
     Dates: start: 20100301
  17. BUDESONIDE [Concomitant]
     Dates: start: 20100301

REACTIONS (3)
  - CROHN'S DISEASE [None]
  - RENAL FAILURE ACUTE [None]
  - STOMATITIS [None]
